FAERS Safety Report 9062947 (Version 1)
Quarter: 2013Q1

REPORT INFORMATION
  Report Type: Report from Study
  Country: US (occurrence: US)
  Receive Date: 20130129
  Receipt Date: 20130129
  Transmission Date: 20140127
  Serious: No
  Sender: FDA-Public Use
  Company Number: US-ABBOTT-12P-163-0947902-00

PATIENT
  Age: 29 Year
  Sex: Female

DRUGS (13)
  1. HUMIRA 40 MG/0.8 ML PEN [Suspect]
     Indication: CROHN^S DISEASE
     Dates: start: 20120404
  2. SYNTHROID [Concomitant]
     Indication: HYPOTHYROIDISM
     Dosage: 112MCG ALTERNATING DAYS WITH 125MCG
  3. CYCLOBENZAPRINE [Concomitant]
     Indication: MYALGIA
     Dosage: 10MG EVERY 8 HOURS
  4. TRAMADOL [Concomitant]
     Indication: MYALGIA
  5. TRAMADOL [Concomitant]
     Indication: ARTHRALGIA
  6. ACETAMINOPHEN [Concomitant]
     Indication: ABDOMINAL PAIN
  7. ACETAMINOPHEN [Concomitant]
     Indication: MYALGIA
  8. ACETAMINOPHEN [Concomitant]
     Indication: ARTHRALGIA
  9. ZOLPIDEM [Concomitant]
     Indication: INSOMNIA
     Dosage: 10MG AT BEDTIME
  10. LYRICA [Concomitant]
     Indication: FIBROMYALGIA
     Dosage: 75MG 1 IN AM, 2 IN PM DAILY
  11. PROMETHAZINE [Concomitant]
     Indication: NAUSEA
  12. METHOCARBAMOL [Concomitant]
     Indication: MIGRAINE
     Dosage: 750MG 1 TABLET 1-2 TIMES A DAY
  13. METHOCARBAMOL [Concomitant]
     Indication: MUSCLE SPASMS

REACTIONS (2)
  - Fatigue [Not Recovered/Not Resolved]
  - Fatigue [Not Recovered/Not Resolved]
